FAERS Safety Report 11468308 (Version 1)
Quarter: 2015Q3

REPORT INFORMATION
  Report Type: Spontaneous
  Country: US (occurrence: US)
  Receive Date: 20150908
  Receipt Date: 20150908
  Transmission Date: 20151125
  Serious: No
  Sender: FDA-Public Use
  Company Number: US-TEVA-591444USA

PATIENT
  Age: 65 Year
  Sex: Male
  Weight: 92.62 kg

DRUGS (6)
  1. SYNTHROID [Concomitant]
     Active Substance: LEVOTHYROXINE SODIUM
     Indication: THYROID DISORDER
  2. TREANDA [Suspect]
     Active Substance: BENDAMUSTINE HYDROCHLORIDE
     Indication: WALDENSTROM^S MACROGLOBULINAEMIA
     Route: 042
  3. ALLOPURINOL. [Concomitant]
     Active Substance: ALLOPURINOL
     Indication: WALDENSTROM^S MACROGLOBULINAEMIA
  4. RITUXAN [Concomitant]
     Active Substance: RITUXIMAB
     Indication: WALDENSTROM^S MACROGLOBULINAEMIA
  5. LASIX [Concomitant]
     Active Substance: FUROSEMIDE
     Indication: AMYLOIDOSIS
  6. LASIX [Concomitant]
     Active Substance: FUROSEMIDE
     Indication: NECROSIS

REACTIONS (3)
  - Infusion site reaction [Not Recovered/Not Resolved]
  - Phlebitis [Not Recovered/Not Resolved]
  - Infusion site pain [Not Recovered/Not Resolved]

NARRATIVE: CASE EVENT DATE: 20150831
